FAERS Safety Report 21290380 (Version 1)
Quarter: 2022Q3

REPORT INFORMATION
  Report Type: Spontaneous
  Country: BR (occurrence: BR)
  Receive Date: 20220902
  Receipt Date: 20220902
  Transmission Date: 20221026
  Serious: Yes (Other)
  Sender: FDA-Public Use
  Company Number: BR-009507513-2203BRA008753

PATIENT
  Sex: Female

DRUGS (1)
  1. MOLNUPIRAVIR [Suspect]
     Active Substance: MOLNUPIRAVIR
     Dosage: UNK
     Route: 048
     Dates: end: 20210712

REACTIONS (3)
  - Caesarean section [Unknown]
  - Extrasystoles [Unknown]
  - Maternal exposure via partner during pregnancy [Unknown]

NARRATIVE: CASE EVENT DATE: 20220620
